FAERS Safety Report 18133074 (Version 3)
Quarter: 2021Q1

REPORT INFORMATION
  Report Type: Spontaneous
  Country: ZA (occurrence: ZA)
  Receive Date: 20200811
  Receipt Date: 20210215
  Transmission Date: 20210419
  Serious: Yes (Hospitalization, Other)
  Sender: FDA-Public Use
  Company Number: ZA-AUROBINDO-AUR-APL-2020-038752

PATIENT
  Age: 19 Year
  Sex: Male

DRUGS (15)
  1. VENLAFAXINE [Interacting]
     Active Substance: VENLAFAXINE HYDROCHLORIDE
     Dosage: 75 MILLIGRAM, ONCE A DAY
     Route: 048
     Dates: start: 20151111, end: 20151113
  2. LORAZEPAM. [Interacting]
     Active Substance: LORAZEPAM
     Dosage: 0.5 MILLIGRAM, ONCE A DAY (MANE)
     Route: 048
     Dates: start: 20151113, end: 20151116
  3. LORAZEPAM. [Interacting]
     Active Substance: LORAZEPAM
     Dosage: 3 MILLIGRAM, ONCE A DAY (NOCTE)
     Route: 048
     Dates: start: 20151116
  4. VENLAFAXINE [Interacting]
     Active Substance: VENLAFAXINE HYDROCHLORIDE
     Dosage: 75 MILLIGRAM (FOR 7 DAYS)
     Route: 048
     Dates: start: 20151103, end: 20151109
  5. FLUOXETINE [Interacting]
     Active Substance: FLUOXETINE HYDROCHLORIDE
     Indication: MAJOR DEPRESSION
     Dosage: 20 MILLIGRAM, ONCE A DAY
     Route: 048
     Dates: start: 20150929, end: 20151020
  6. FLUOXETINE [Interacting]
     Active Substance: FLUOXETINE HYDROCHLORIDE
     Dosage: 20 MILLIGRAM, ONCE A DAY (FOR 3 DAYS)
     Route: 048
     Dates: start: 20151027, end: 20151030
  7. LORAZEPAM. [Interacting]
     Active Substance: LORAZEPAM
     Dosage: 0.5 MILLIGRAM, ONCE A DAY (MIDDAY)
     Route: 048
     Dates: start: 20151116
  8. FLUOXETINE [Interacting]
     Active Substance: FLUOXETINE HYDROCHLORIDE
     Dosage: 40 MILLIGRAM, ONCE A DAY
     Route: 048
     Dates: start: 20151020, end: 20151027
  9. VENLAFAXINE [Interacting]
     Active Substance: VENLAFAXINE HYDROCHLORIDE
     Dosage: 112.5 MILLIGRAM, ONCE A DAY (FOR 14 DAYS)
     Route: 048
     Dates: start: 20151109, end: 20151111
  10. LORAZEPAM. [Interacting]
     Active Substance: LORAZEPAM
     Dosage: 2 MILLIGRAM, ONCE A DAY (NOCTE)
     Route: 048
     Dates: start: 20151113, end: 20151116
  11. VENLAFAXINE [Suspect]
     Active Substance: VENLAFAXINE HYDROCHLORIDE
     Indication: MAJOR DEPRESSION
     Dosage: 37.5 MILLIGRAM (FOR 7 DAYS)
     Route: 048
  12. VENLAFAXINE [Interacting]
     Active Substance: VENLAFAXINE HYDROCHLORIDE
     Dosage: 37.5 MILLIGRAM
     Route: 048
     Dates: start: 20151027, end: 20151102
  13. LORAZEPAM. [Interacting]
     Active Substance: LORAZEPAM
     Indication: ANXIETY
     Dosage: 0.5 MILLIGRAM, ONCE A DAY
     Route: 048
     Dates: start: 20151013, end: 20151113
  14. LORAZEPAM. [Interacting]
     Active Substance: LORAZEPAM
     Dosage: 0.5 MILLIGRAM, ONCE A DAY (MIDDAY)
     Route: 048
     Dates: start: 20151113, end: 20151116
  15. LORAZEPAM. [Interacting]
     Active Substance: LORAZEPAM
     Dosage: 0.5 MILLIGRAM, ONCE A DAY (MANE)
     Route: 048
     Dates: start: 20151116

REACTIONS (5)
  - Drug ineffective [Unknown]
  - Psychotic disorder [Recovered/Resolved]
  - Drug interaction [Recovered/Resolved]
  - Abnormal behaviour [Unknown]
  - Mania [Recovered/Resolved]

NARRATIVE: CASE EVENT DATE: 20151111
